FAERS Safety Report 5829723-4 (Version None)
Quarter: 2008Q3

REPORT INFORMATION
  Report Type: 
  Country: None (occurrence: None)
  Receive Date: 20080729
  Receipt Date: 20080718
  Transmission Date: 20090109
  Serious: Yes (Life-Threatening, Other)
  Sender: FDA-Public Use
  Company Number: 20085410

PATIENT
  Sex: Female

DRUGS (1)
  1. LIORESAL [Suspect]
     Indication: MUSCLE SPASTICITY
     Dosage: \MCG, DAILY, INTRATHECAL
     Route: 037

REACTIONS (13)
  - ASTHENIA [None]
  - CELLULITIS [None]
  - DEVICE MIGRATION [None]
  - HALLUCINATION [None]
  - HEADACHE [None]
  - HYPERTONIA [None]
  - INFECTION [None]
  - INTRACRANIAL HYPOTENSION [None]
  - MENINGITIS [None]
  - NAUSEA [None]
  - PAIN [None]
  - PSYCHOTIC DISORDER [None]
  - PYREXIA [None]
